FAERS Safety Report 14542272 (Version 1)
Quarter: 2018Q1

REPORT INFORMATION
  Report Type: Spontaneous
  Country: US (occurrence: US)
  Receive Date: 20180216
  Receipt Date: 20180216
  Transmission Date: 20180509
  Serious: Yes (Hospitalization, Other)
  Sender: FDA-Public Use
  Company Number: US-OTSUKA-DJ201303788

PATIENT
  Sex: Male

DRUGS (2)
  1. ABILIFY [Suspect]
     Active Substance: ARIPIPRAZOLE
     Indication: PRODUCT USED FOR UNKNOWN INDICATION
     Dosage: 5 MG, UNK
     Route: 065
     Dates: start: 2005
  2. HALDOL [Concomitant]
     Active Substance: HALOPERIDOL
     Indication: PRODUCT USED FOR UNKNOWN INDICATION
     Dosage: UNK
     Route: 065

REACTIONS (15)
  - Vision blurred [Unknown]
  - Dystonia [Unknown]
  - Product quality issue [Unknown]
  - Cerebrovascular accident [Unknown]
  - Tardive dyskinesia [Recovering/Resolving]
  - Musculoskeletal stiffness [Unknown]
  - Eye disorder [Unknown]
  - Tremor [Unknown]
  - Parkinsonism [Recovering/Resolving]
  - Fall [Unknown]
  - Pain [Unknown]
  - Dyskinesia [Unknown]
  - Tongue biting [Unknown]
  - Somnolence [Unknown]
  - Dizziness [Unknown]
